FAERS Safety Report 9907580 (Version 2)
Quarter: 2014Q1

REPORT INFORMATION
  Report Type: Spontaneous
  Country: DE (occurrence: DE)
  Receive Date: 20140218
  Receipt Date: 20140224
  Transmission Date: 20141002
  Serious: Yes (Hospitalization, Congenital Anomaly, Other)
  Sender: FDA-Public Use
  Company Number: DE-PFIZER INC-2014042351

PATIENT
  Sex: Female
  Weight: 2.49 kg

DRUGS (4)
  1. VENLAFAXINE HCL [Suspect]
     Indication: DEPRESSION
     Dosage: 150 MG, DAILY
     Route: 064
     Dates: start: 20120505, end: 20130124
  2. LAMOTRIGINE [Suspect]
     Indication: BIPOLAR DISORDER RELAPSE PROPHYLAXIS
     Dosage: 100 MG, DAILY
     Route: 064
     Dates: start: 20120505, end: 20140124
  3. VOMEX A [Concomitant]
     Indication: VOMITING IN PREGNANCY
     Dosage: 8-16 GESTATIONAL WEEK
     Route: 064
  4. FOLSAURE [Concomitant]
     Indication: PROPHYLAXIS OF NEURAL TUBE DEFECT
     Dosage: 6-19.2 GESTATIONAL WEEK
     Route: 064
     Dates: end: 20120917

REACTIONS (4)
  - Maternal exposure during pregnancy [Not Recovered/Not Resolved]
  - Ventricular septal defect [Not Recovered/Not Resolved]
  - Foetal heart rate deceleration abnormality [Unknown]
  - Atrial septal defect [Recovering/Resolving]
